FAERS Safety Report 7802214-7 (Version None)
Quarter: 2011Q4

REPORT INFORMATION
  Report Type: 
  Country: None (occurrence: None)
  Receive Date: 20111007
  Receipt Date: 20110930
  Transmission Date: 20120403
  Serious: Yes (Hospitalization)
  Sender: FDA-Public Use
  Company Number: DE-B.I. PHARMACEUTICALS,INC./RIDGEFIELD-2011-DE-05525DE

PATIENT
  Age: 70 Year
  Sex: Male

DRUGS (2)
  1. AMIODARONE HCL [Concomitant]
  2. PRADAXA [Suspect]

REACTIONS (4)
  - GASTROINTESTINAL HAEMORRHAGE [None]
  - BLOOD COUNT ABNORMAL [None]
  - PLATELET COUNT DECREASED [None]
  - DISCOMFORT [None]
